FAERS Safety Report 11031881 (Version 2)
Quarter: 2015Q2

REPORT INFORMATION
  Report Type: Spontaneous
  Country: CN (occurrence: CN)
  Receive Date: 20150415
  Receipt Date: 20150420
  Transmission Date: 20150821
  Serious: Yes (Hospitalization, Other)
  Sender: FDA-Public Use
  Company Number: CN-GLAXOSMITHKLINE-CN2015GSK046465

PATIENT
  Age: 52 Year
  Sex: Female
  Weight: 45 kg

DRUGS (1)
  1. HEPTODIN [Suspect]
     Active Substance: LAMIVUDINE
     Indication: HEPATIC CIRRHOSIS
     Dosage: 1 DF, QD
     Route: 048
     Dates: start: 2012

REACTIONS (6)
  - Viral load increased [Recovered/Resolved]
  - Weight decreased [Not Recovered/Not Resolved]
  - Suspected counterfeit product [Unknown]
  - Off label use [Unknown]
  - Product quality issue [Unknown]
  - Ascites [Recovered/Resolved]

NARRATIVE: CASE EVENT DATE: 2012
